FAERS Safety Report 4591427-6 (Version None)
Quarter: 2005Q1

REPORT INFORMATION
  Report Type: 
  Country: None (occurrence: None)
  Receive Date: 20050223
  Receipt Date: 20050223
  Transmission Date: 20050727
  Serious: No
  Sender: FDA-Public Use
  Company Number: None

PATIENT
  Sex: Female

DRUGS (11)
  1. DAPTOMYCIN [Suspect]
     Indication: LOCALISED INFECTION
     Dosage: 500 MG IV Q24
     Route: 042
     Dates: start: 20050208, end: 20050221
  2. DAPTOMYCIN [Suspect]
     Indication: PSEUDOMONAS INFECTION
     Dosage: 500 MG IV Q24
     Route: 042
     Dates: start: 20050208, end: 20050221
  3. ACCUZYME OINT. [Concomitant]
  4. MOM [Concomitant]
  5. M.V.I. [Concomitant]
  6. OXYCODONE HCL [Concomitant]
  7. PLAVIX [Concomitant]
  8. SENNA S [Concomitant]
  9. SYNTHROID [Concomitant]
  10. TYLENOL (CAPLET) [Concomitant]
  11. CEFEPIME [Concomitant]

REACTIONS (5)
  - BLOOD CREATINE PHOSPHOKINASE INCREASED [None]
  - BLOOD CREATININE INCREASED [None]
  - BLOOD URINE PRESENT [None]
  - C-REACTIVE PROTEIN INCREASED [None]
  - HEPATIC ENZYME INCREASED [None]
